FAERS Safety Report 21524121 (Version 1)
Quarter: 2022Q4

REPORT INFORMATION
  Report Type: Spontaneous
  Country: FR (occurrence: FR)
  Receive Date: 20221029
  Receipt Date: 20221029
  Transmission Date: 20230112
  Serious: Yes (Other)
  Sender: FDA-Public Use
  Company Number: None

PATIENT
  Age: 2 Day
  Sex: Male

DRUGS (1)
  1. PROPRANOLOL [Suspect]
     Active Substance: PROPRANOLOL HYDROCHLORIDE
     Indication: Extrasystoles
     Dosage: UNIT DOSE: 40 MG, FREQUENCY TIME : 1 DAY, DURATION : 9 MONTHS
     Route: 065
     Dates: start: 202201, end: 20221001

REACTIONS (3)
  - Electrocardiogram QT prolonged [Recovered/Resolved]
  - Bradycardia neonatal [Recovered/Resolved]
  - Paroxysmal atrioventricular block [Recovered/Resolved]

NARRATIVE: CASE EVENT DATE: 20221003
